FAERS Safety Report 4690114-3 (Version None)
Quarter: 2005Q2

REPORT INFORMATION
  Report Type: 
  Country: None (occurrence: None)
  Receive Date: 20050613
  Receipt Date: 20050609
  Transmission Date: 20051028
  Serious: Yes (Hospitalization)
  Sender: FDA-Public Use
  Company Number: LTI2005A00075

PATIENT
  Age: 72 Year
  Sex: Male

DRUGS (1)
  1. ENANTONE LP 11.25 MG PREP INJ (LEUPROLIDE ACETATE) (11.25 MILLIGRAM, I [Suspect]
     Indication: PROSTATE CANCER
     Dosage: 11.25 MG (11.25 MG, 1 IN 3M), INTRA-MUSCULAR
     Route: 030
     Dates: start: 20030101, end: 20050120

REACTIONS (6)
  - ATYPICAL MYCOBACTERIAL INFECTION [None]
  - DRUG HYPERSENSITIVITY [None]
  - INJECTION SITE ABSCESS [None]
  - INJECTION SITE INDURATION [None]
  - INJECTION SITE ULCER [None]
  - STAPHYLOCOCCAL INFECTION [None]
